FAERS Safety Report 5785969-5 (Version None)
Quarter: 2008Q2

REPORT INFORMATION
  Report Type: 
  Country: None (occurrence: None)
  Receive Date: 20080624
  Receipt Date: 20080612
  Transmission Date: 20081010
  Serious: Yes (Other)
  Sender: FDA-Public Use
  Company Number: PHEH2008US05346

PATIENT

DRUGS (1)
  1. TEGRETOL-XR [Suspect]
     Dosage: UNK

REACTIONS (1)
  - BURNS SECOND DEGREE [None]
